FAERS Safety Report 17448101 (Version 3)
Quarter: 2020Q2

REPORT INFORMATION
  Report Type: Spontaneous
  Country: DE (occurrence: DE)
  Receive Date: 20200222
  Receipt Date: 20200422
  Transmission Date: 20200713
  Serious: Yes (Other)
  Sender: FDA-Public Use
  Company Number: NVSC2020DE045243

PATIENT
  Sex: Female
  Weight: 140 kg

DRUGS (2)
  1. VALSARTAN. [Suspect]
     Active Substance: VALSARTAN
     Indication: HYPERTENSION
     Dosage: 160 MG, QD  (ONCE IN THE MORNING)
     Route: 048
  2. VALSARTAN. [Suspect]
     Active Substance: VALSARTAN
     Indication: BLOOD PRESSURE ABNORMAL
     Dosage: 320 MG, QD (160 MG BID)
     Route: 065
     Dates: start: 2015, end: 201811

REACTIONS (2)
  - Mental impairment [Not Recovered/Not Resolved]
  - Quality of life decreased [Not Recovered/Not Resolved]
